FAERS Safety Report 25929982 (Version 2)
Quarter: 2025Q4

REPORT INFORMATION
  Report Type: Spontaneous
  Country: US (occurrence: US)
  Receive Date: 20251016
  Receipt Date: 20251022
  Transmission Date: 20260117
  Serious: Yes (Other)
  Sender: PFIZER
  Company Number: US-PFIZER INC-PV202500121399

PATIENT
  Age: 75 Year
  Sex: Male

DRUGS (2)
  1. LIDOCAINE HYDROCHLORIDE [Suspect]
     Active Substance: LIDOCAINE HYDROCHLORIDE
     Indication: Anaesthesia
     Dosage: 0.07 ML INTRAVITREALLY OD THROUGH THE PARS PLANA
     Route: 031
  2. AFLIBERCEPT [Suspect]
     Active Substance: AFLIBERCEPT
     Indication: Neovascular age-related macular degeneration
     Dosage: INTRAVITREAL INJECTIONS EVERY 5 WEEKS
     Route: 031

REACTIONS (3)
  - Wrong product administered [Recovered/Resolved]
  - Visual acuity reduced transiently [Recovered/Resolved]
  - Intraocular pressure increased [Recovered/Resolved]
